FAERS Safety Report 9355463 (Version 1)
Quarter: 2013Q2

REPORT INFORMATION
  Report Type: Spontaneous
  Country: FR (occurrence: FR)
  Receive Date: 20130619
  Receipt Date: 20130619
  Transmission Date: 20140414
  Serious: Yes (Hospitalization, Other)
  Sender: FDA-Public Use
  Company Number: FR-PFIZER INC-2013180274

PATIENT
  Age: 74 Year
  Sex: Female

DRUGS (12)
  1. EFFEXOR LP [Suspect]
     Indication: DEPRESSION
     Dosage: 75 MG, 1X/DAY
     Route: 048
     Dates: end: 20130308
  2. TEMERIT DUO [Suspect]
     Indication: HYPERTENSION
     Dosage: 1 DF, DAILY
     Route: 048
     Dates: end: 20130308
  3. PRETERAX [Suspect]
     Indication: HYPERSENSITIVITY
     Dosage: 1 DF, DAILY
     Route: 048
     Dates: end: 20130308
  4. DOGMATIL [Concomitant]
     Indication: DEPRESSION
     Dosage: 50 MG, DAILY
     Route: 048
  5. TEMESTA [Concomitant]
     Indication: DEPRESSION
     Dosage: 2.5 MG, DAILY
     Route: 048
  6. LAROXYL [Concomitant]
     Dosage: UNK
     Route: 048
     Dates: end: 20130315
  7. TIAPRIDAL [Concomitant]
     Indication: DEPRESSION
     Dosage: UNK
     Route: 048
  8. AMAREL [Concomitant]
     Indication: GLUCOSE TOLERANCE IMPAIRED
     Dosage: 0.5 MG, DAILY
     Route: 048
  9. LESCOL [Concomitant]
     Indication: DYSLIPIDAEMIA
     Dosage: 20 MG, 1X/DAY
     Route: 048
     Dates: end: 20130315
  10. KARDEGIC [Concomitant]
     Indication: CARDIOVASCULAR EVENT PROPHYLAXIS
     Dosage: 1 DF, DAILY
     Route: 048
  11. LEVOTHYROX [Concomitant]
     Indication: HYPOTHYROIDISM
     Dosage: 50 UG, DAILY
     Route: 048
  12. AUGMENTIN [Concomitant]
     Indication: SINUSITIS
     Dosage: UNK
     Route: 048
     Dates: start: 201303, end: 20130315

REACTIONS (9)
  - Abdominal pain [Unknown]
  - Hyponatraemia [Recovered/Resolved]
  - Escherichia infection [Unknown]
  - Arterial stenosis [Unknown]
  - Hypokalaemia [Recovered/Resolved]
  - Mental disorder [Recovered/Resolved]
  - Proteinuria [Unknown]
  - Haemoglobin abnormal [Unknown]
  - Hyperadrenalism [Unknown]
